FAERS Safety Report 6417064 (Version 4)
Quarter: 2013Q4

REPORT INFORMATION
  Report Type: Spontaneous
  Country: US (occurrence: US)
  Receive Date: 20070918
  Receipt Date: 20131112
  Transmission Date: 20140711
  Serious: Yes (Death, Other)
  Sender: FDA-Public Use
  Company Number: US-ASTRAZENECA-2006UW24594

PATIENT
  Age: 60 Year
  Sex: Male

DRUGS (20)
  1. SEROQUEL [Suspect]
     Indication: DEPRESSION
     Route: 048
     Dates: start: 20050525
  2. SEROQUEL [Suspect]
     Indication: DEPRESSION
     Dosage: 25 MG - 250 MG
     Route: 048
     Dates: start: 20050622
  3. NEXIUM [Suspect]
     Route: 048
     Dates: start: 20071003
  4. ABILIFY [Concomitant]
  5. ZYPREXA [Concomitant]
  6. LEXAPRO [Concomitant]
     Dosage: STRENGTH - 10 MG, 20 MG
     Dates: start: 20050622
  7. ZOCOR [Concomitant]
     Dates: start: 20050510
  8. CARISOPRODOL [Concomitant]
     Dates: start: 20050607
  9. CLONAZEPAM [Concomitant]
     Dosage: STRENGTH - 0.5 MG, 1 MG
     Dates: start: 20050622
  10. AVAPRO [Concomitant]
     Dates: start: 20060914
  11. LORTAB [Concomitant]
     Indication: PAIN
     Dates: start: 20060116
  12. ALTACE [Concomitant]
     Dates: start: 20071203
  13. DILTIAZEM [Concomitant]
     Dosage: 180/24 MG
     Dates: start: 20080204
  14. PROTONIX [Concomitant]
     Dates: start: 20080510
  15. LOTREL [Concomitant]
     Dosage: 10-20 MG
     Dates: start: 20050510
  16. COREG [Concomitant]
     Dosage: 12.5 MG
     Dates: start: 20050510
  17. THORAZINE [Concomitant]
     Dates: start: 20050510
  18. LIPRAM [Concomitant]
     Dates: start: 20050510
  19. ROXICET [Concomitant]
     Dosage: 5/325
     Dates: start: 20050609
  20. FLUOXETINE [Concomitant]
     Dates: start: 20050901

REACTIONS (5)
  - Death [Fatal]
  - Pancreatitis [Unknown]
  - Rib fracture [Unknown]
  - Osteoporosis [Unknown]
  - Multiple fractures [Unknown]
